FAERS Safety Report 6385352-8 (Version None)
Quarter: 2009Q4

REPORT INFORMATION
  Report Type: 
  Country: None (occurrence: None)
  Receive Date: 20091002
  Receipt Date: 20080813
  Transmission Date: 20100525
  Serious: No
  Sender: FDA-Public Use
  Company Number: US-ASTRAZENECA-2008UW16023

PATIENT
  Age: 60 Year
  Sex: Female
  Weight: 71.2 kg

DRUGS (5)
  1. ARIMIDEX [Suspect]
     Indication: BREAST CANCER FEMALE
     Route: 048
     Dates: start: 20071201
  2. VIT C [Concomitant]
  3. VITAMIN B-12 [Concomitant]
  4. GLUCOSAMINE [Concomitant]
  5. M.V.I. [Concomitant]

REACTIONS (12)
  - ARTHROPATHY [None]
  - BREAST PAIN [None]
  - COUGH [None]
  - DYSPHAGIA [None]
  - DYSPNOEA EXERTIONAL [None]
  - HOT FLUSH [None]
  - ILL-DEFINED DISORDER [None]
  - INCREASED UPPER AIRWAY SECRETION [None]
  - MEMORY IMPAIRMENT [None]
  - MUSCULOSKELETAL PAIN [None]
  - TOOTHACHE [None]
  - WEIGHT INCREASED [None]
